FAERS Safety Report 15899569 (Version 9)
Quarter: 2019Q4

REPORT INFORMATION
  Report Type: Spontaneous
  Country: US (occurrence: US)
  Receive Date: 20190201
  Receipt Date: 20191008
  Transmission Date: 20200122
  Serious: Yes (Hospitalization)
  Sender: FDA-Public Use
  Company Number: US-PFIZER INC-2018454465

PATIENT
  Age: 63 Year
  Sex: Female
  Weight: 63.49 kg

DRUGS (15)
  1. METOPROLOL. [Concomitant]
     Active Substance: METOPROLOL
     Dosage: UNK
  2. RAPAMUNE [Suspect]
     Active Substance: SIROLIMUS
     Dosage: 4 MG, DAILY (1MG TABLETS, 4 TABLETS PER DAY)
  3. ZOLOFT [Concomitant]
     Active Substance: SERTRALINE HYDROCHLORIDE
     Dosage: UNK
  4. PROGRAF [Suspect]
     Active Substance: TACROLIMUS
     Indication: HEART TRANSPLANT
     Dosage: 4 MG, 2X/DAY
     Dates: start: 201801
  5. VITAMIN B [Concomitant]
     Active Substance: VITAMIN B
     Dosage: UNK
  6. RAPAMUNE [Suspect]
     Active Substance: SIROLIMUS
     Indication: COMPLICATIONS OF TRANSPLANTED HEART
     Dosage: 3.5 MG, DAILY (TAKE 1 TAB OF 0.5 MG BY MOUTH DAILY/ TAKE 3 TAB OF 1 MG BY MOUTH DAILY)
     Route: 048
  7. ACYCLOVIR [ACICLOVIR] [Concomitant]
     Active Substance: ACYCLOVIR
     Dosage: UNK
  8. RAPAMUNE [Suspect]
     Active Substance: SIROLIMUS
     Indication: LEUKOPENIA
     Dosage: 3.5 MG, DAILY (TAKE 1 TAB OF 0.5 MG BY MOUTH DAILY/ TAKE 3 TAB OF 1 MG BY MOUTH DAILY)
     Route: 048
  9. RAPAMUNE [Suspect]
     Active Substance: SIROLIMUS
     Dosage: 4 MG, DAILY [TAKE 4 TABS (4MG TOTAL) BY MOUTH DAILY]
     Route: 048
  10. SYNTHROID [Concomitant]
     Active Substance: LEVOTHYROXINE SODIUM
     Dosage: UNK
  11. CALCIUM [Concomitant]
     Active Substance: CALCIUM
     Dosage: UNK
  12. RAPAMUNE [Suspect]
     Active Substance: SIROLIMUS
     Indication: HEART TRANSPLANT
     Dosage: 3 MG, DAILY (TAKE 3 TABS BY MOUTH DAILY)
     Route: 048
     Dates: start: 2018
  13. RAPAMUNE [Suspect]
     Active Substance: SIROLIMUS
     Dosage: UNK, (1MG AND THE HALF MG AND I THINK ITS NOW JUST 3MG)
  14. ROSUVASTATIN. [Concomitant]
     Active Substance: ROSUVASTATIN
     Dosage: UNK
  15. ASPIRIN [ACETYLSALICYLIC ACID] [Concomitant]
     Active Substance: ASPIRIN
     Dosage: UNK

REACTIONS (7)
  - Product use in unapproved indication [Recovered/Resolved]
  - Drug level decreased [Recovered/Resolved]
  - Pyrexia [Recovered/Resolved]
  - Diarrhoea [Not Recovered/Not Resolved]
  - Off label use [Recovered/Resolved]
  - Product dispensing error [Recovered/Resolved]
  - White blood cell count decreased [Unknown]

NARRATIVE: CASE EVENT DATE: 2018
